FAERS Safety Report 14462420 (Version 3)
Quarter: 2018Q2

REPORT INFORMATION
  Report Type: Spontaneous
  Country: US (occurrence: US)
  Receive Date: 20180130
  Receipt Date: 20180521
  Transmission Date: 20180711
  Serious: No
  Sender: FDA-Public Use
  Company Number: US-ACTELION-A-US2018-166377

PATIENT
  Age: 75 Year
  Sex: Male

DRUGS (2)
  1. ADCIRCA [Concomitant]
     Active Substance: TADALAFIL
  2. TRACLEER [Suspect]
     Active Substance: BOSENTAN
     Indication: PULMONARY HYPERTENSION
     Dosage: 125 MG, QD
     Route: 048

REACTIONS (5)
  - Disease progression [Unknown]
  - Nasal congestion [Unknown]
  - Abdominal pain upper [Unknown]
  - Hypoacusis [Unknown]
  - Weight decreased [Unknown]

NARRATIVE: CASE EVENT DATE: 20180425
